FAERS Safety Report 9348028 (Version 1)
Quarter: 2013Q2

REPORT INFORMATION
  Report Type: Spontaneous
  Country: US (occurrence: None)
  Receive Date: 20130612
  Receipt Date: 20130612
  Transmission Date: 20140414
  Serious: Yes (Life-Threatening, Hospitalization)
  Sender: FDA-Public Use
  Company Number: None

PATIENT
  Age: 67 Year
  Sex: Male
  Weight: 95.1 kg

DRUGS (1)
  1. CLOPIDOGREL [Suspect]
     Indication: SURGERY
     Route: 048
     Dates: start: 20130130, end: 20130208

REACTIONS (4)
  - Chest pain [None]
  - Troponin increased [None]
  - Angina pectoris [None]
  - Hypertension [None]
